FAERS Safety Report 21914753 (Version 1)
Quarter: 2023Q1

REPORT INFORMATION
  Report Type: Report from Study
  Country: US (occurrence: US)
  Receive Date: 20230126
  Receipt Date: 20230126
  Transmission Date: 20230417
  Serious: Yes (Other)
  Sender: FDA-Public Use
  Company Number: US-ABBVIE-4281437

PATIENT
  Age: 23 Year
  Sex: Female

DRUGS (1)
  1. HUMIRA [Suspect]
     Active Substance: ADALIMUMAB
     Indication: Cyst
     Dosage: CITRATE FREE
     Route: 058
     Dates: start: 2021

REACTIONS (7)
  - Cyst [Not Recovered/Not Resolved]
  - Limb operation [Unknown]
  - Drug ineffective [Not Recovered/Not Resolved]
  - Injection site erythema [Recovering/Resolving]
  - Off label use [Not Recovered/Not Resolved]
  - Cyst [Recovering/Resolving]
  - Injection site pruritus [Recovered/Resolved]

NARRATIVE: CASE EVENT DATE: 20210101
